FAERS Safety Report 13136181 (Version 1)
Quarter: 2017Q1

REPORT INFORMATION
  Report Type: Spontaneous
  Country: CA (occurrence: CA)
  Receive Date: 20170121
  Receipt Date: 20170121
  Transmission Date: 20170428
  Serious: Yes (Other)
  Sender: FDA-Public Use
  Company Number: CA-TEVA-731891ACC

PATIENT
  Age: 32 Year
  Sex: Female

DRUGS (3)
  1. WELLBUTRIN [Concomitant]
     Active Substance: BUPROPION HYDROCHLORIDE
  2. CIPROFLOXACIN. [Suspect]
     Active Substance: CIPROFLOXACIN
     Indication: URINARY TRACT INFECTION
     Dosage: 1000 MILLIGRAM DAILY;
     Route: 065
  3. DEPO-PROVERA STERILE AQUEOUS SUSPENSION [Concomitant]

REACTIONS (5)
  - Abdominal pain lower [Unknown]
  - Condition aggravated [Unknown]
  - Blood urine present [Unknown]
  - Haemorrhage [Unknown]
  - Vaginal haemorrhage [Unknown]
